FAERS Safety Report 4799914-2 (Version None)
Quarter: 2005Q4

REPORT INFORMATION
  Report Type: 
  Country: None (occurrence: None)
  Receive Date: 20051017
  Receipt Date: 20050920
  Transmission Date: 20060501
  Serious: Yes (Hospitalization, Other)
  Sender: FDA-Public Use
  Company Number: 200516658US

PATIENT
  Sex: Male
  Weight: 88.6 kg

DRUGS (9)
  1. LASIX [Suspect]
     Route: 048
  2. VASOTEC [Suspect]
     Route: 048
     Dates: end: 20031001
  3. ZESTRIL [Suspect]
     Indication: HYPERTENSION
     Route: 048
     Dates: start: 20040106
  4. SPIRONALACTONE [Suspect]
     Dates: end: 20050726
  5. DIABETA [Concomitant]
     Dosage: DOSE: UNKNOWN
     Dates: start: 20010525
  6. GLUCOPHAGE [Concomitant]
     Dosage: DOSE: UNKNOWN
     Dates: start: 20010525
  7. AVANDIA [Concomitant]
     Dosage: DOSE: UNKNOWN
  8. MICRONASE [Concomitant]
     Dosage: DOSE: UNKNOWN
     Dates: end: 20050712
  9. ALBUTEROL [Concomitant]
     Dosage: DOSE: UNKNOWN

REACTIONS (8)
  - ANOREXIA [None]
  - BLOOD CREATININE INCREASED [None]
  - HYPERKALAEMIA [None]
  - HYPOXIA [None]
  - NAUSEA [None]
  - PALLOR [None]
  - RENAL FAILURE ACUTE [None]
  - WEIGHT DECREASED [None]
